FAERS Safety Report 10629997 (Version 1)
Quarter: 2014Q4

REPORT INFORMATION
  Report Type: Spontaneous
  Country: None (occurrence: US)
  Receive Date: 20141205
  Receipt Date: 20141205
  Transmission Date: 20150529
  Serious: No
  Sender: FDA-Public Use
  Company Number: US-BRISTOL-MYERS SQUIBB COMPANY-21212485

PATIENT
  Age: 58 Year
  Sex: Female
  Weight: 65.3 kg

DRUGS (11)
  1. NIFEDIPINE. [Concomitant]
     Active Substance: NIFEDIPINE
  2. ASPIRIN. [Concomitant]
     Active Substance: ASPIRIN
  3. ANASTROZOLE. [Concomitant]
     Active Substance: ANASTROZOLE
  4. METFORMIN [Concomitant]
     Active Substance: METFORMIN HYDROCHLORIDE
  5. LISINOPRIL. [Concomitant]
     Active Substance: LISINOPRIL
  6. ZANTAC [Concomitant]
     Active Substance: RANITIDINE HYDROCHLORIDE
  7. ATORVASTATIN [Concomitant]
     Active Substance: ATORVASTATIN
  8. FASLODEX [Concomitant]
     Active Substance: FULVESTRANT
  9. SYNTHROID [Concomitant]
     Active Substance: LEVOTHYROXINE SODIUM
  10. DENOSUMAB [Concomitant]
     Active Substance: DENOSUMAB
  11. SPRYCEL [Suspect]
     Active Substance: DASATINIB
     Indication: CHRONIC MYELOID LEUKAEMIA
     Route: 048

REACTIONS (3)
  - Nausea [Unknown]
  - Gastritis [Unknown]
  - Abdominal pain [Unknown]
